FAERS Safety Report 5914213-0 (Version None)
Quarter: 2008Q4

REPORT INFORMATION
  Report Type: 
  Country: None (occurrence: None)
  Receive Date: 20081009
  Receipt Date: 20080927
  Transmission Date: 20090506
  Serious: Yes (Other)
  Sender: FDA-Public Use
  Company Number: US-PFIZER INC-2008035094

PATIENT
  Sex: Female
  Weight: 77.1 kg

DRUGS (10)
  1. CHANTIX [Suspect]
     Indication: SMOKING CESSATION THERAPY
     Dates: start: 20070101, end: 20080901
  2. HYDROXYZINE PAMOATE [Concomitant]
  3. IMITREX [Concomitant]
  4. DEPAKOTE [Concomitant]
  5. NEURONTIN [Concomitant]
  6. REMERON [Concomitant]
  7. PAXIL [Concomitant]
  8. TRAZODONE HCL [Concomitant]
  9. KLONOPIN [Concomitant]
  10. ACIPHEX [Concomitant]

REACTIONS (2)
  - DELUSION [None]
  - HALLUCINATION, AUDITORY [None]
